FAERS Safety Report 18586467 (Version 1)
Quarter: 2020Q4

REPORT INFORMATION
  Report Type: Spontaneous
  Country: PL (occurrence: PL)
  Receive Date: 20201204
  Receipt Date: 20201204
  Transmission Date: 20210114
  Serious: Yes (Hospitalization, Other)
  Sender: FDA-Public Use
  Company Number: PL-AUROBINDO-AUR-APL-2020-059246

PATIENT
  Age: 68 Year
  Sex: Male

DRUGS (6)
  1. METFORMIN [Suspect]
     Active Substance: METFORMIN HYDROCHLORIDE
     Indication: PRODUCT USED FOR UNKNOWN INDICATION
     Dosage: 3 DOSAGE FORM (3 DF (3X500MG))
     Route: 065
  2. RAMIPRIL. [Suspect]
     Active Substance: RAMIPRIL
     Indication: PRODUCT USED FOR UNKNOWN INDICATION
     Dosage: 1 DOSAGE FORM (1 DF (1X10MG))
     Route: 065
  3. SPIRONOLACTONE. [Suspect]
     Active Substance: SPIRONOLACTONE
     Indication: PRODUCT USED FOR UNKNOWN INDICATION
     Dosage: UNK (UNK (1X25MG))
     Route: 065
  4. BISOPROLOL [Suspect]
     Active Substance: BISOPROLOL
     Dosage: 1 DOSAGE FORM (1 DF)
     Route: 065
  5. BISOPROLOL [Suspect]
     Active Substance: BISOPROLOL
     Indication: PRODUCT USED FOR UNKNOWN INDICATION
     Dosage: 1 DOSAGE FORM (1 DF (1X5MG))
     Route: 065
  6. FUROSEMIDE. [Suspect]
     Active Substance: FUROSEMIDE
     Indication: PRODUCT USED FOR UNKNOWN INDICATION
     Dosage: UNK (UNK (1X2MG))
     Route: 065

REACTIONS (14)
  - Pulmonary vascular disorder [Unknown]
  - Troponin T increased [Unknown]
  - Pleural effusion [Recovering/Resolving]
  - Glomerular filtration rate increased [Unknown]
  - Mitral valve incompetence [Unknown]
  - Dyspnoea at rest [Recovering/Resolving]
  - Brain natriuretic peptide increased [Unknown]
  - Rales [Unknown]
  - Ventricular enlargement [Unknown]
  - Peripheral swelling [Unknown]
  - Tachycardia [Unknown]
  - Akinesia [Unknown]
  - Tricuspid valve incompetence [Unknown]
  - Orthopnoea [Unknown]
